FAERS Safety Report 18981863 (Version 1)
Quarter: 2021Q1

REPORT INFORMATION
  Report Type: Spontaneous
  Country: AU (occurrence: AU)
  Receive Date: 20210308
  Receipt Date: 20210308
  Transmission Date: 20210420
  Serious: Yes (Life-Threatening, Hospitalization, Other)
  Sender: FDA-Public Use
  Company Number: AU-ASTRAZENECA-2021A064537

PATIENT
  Age: 57 Year
  Sex: Male
  Weight: 102 kg

DRUGS (10)
  1. TICAGRELOR. [Suspect]
     Active Substance: TICAGRELOR
     Indication: STENT PLACEMENT
     Route: 048
     Dates: start: 202012, end: 202101
  2. EMPAGLIFLOZIN [Concomitant]
     Active Substance: EMPAGLIFLOZIN
  3. SITAGLIPTIN [Concomitant]
     Active Substance: SITAGLIPTIN
     Indication: TYPE 2 DIABETES MELLITUS
     Dosage: 50
     Route: 048
  4. ALDACTONE [Concomitant]
     Active Substance: SPIRONOLACTONE
  5. ATORVASTATIN [Concomitant]
     Active Substance: ATORVASTATIN
  6. BISOPROLOL [Concomitant]
     Active Substance: BISOPROLOL
  7. METFORMON [Concomitant]
  8. PERINDOPRIL [Concomitant]
     Active Substance: PERINDOPRIL
  9. FRUSEMIDE [Concomitant]
     Active Substance: FUROSEMIDE
     Indication: TYPE 2 DIABETES MELLITUS
  10. ASPIRIN. [Concomitant]
     Active Substance: ASPIRIN

REACTIONS (7)
  - Cardiac failure [Recovering/Resolving]
  - Dysphagia [Recovering/Resolving]
  - Taste disorder [Recovering/Resolving]
  - Angioedema [Recovered/Resolved]
  - Swollen tongue [Recovering/Resolving]
  - Sepsis [Recovering/Resolving]
  - Glossitis [Recovering/Resolving]
